FAERS Safety Report 7490377-5 (Version None)
Quarter: 2011Q2

REPORT INFORMATION
  Report Type: 
  Country: None (occurrence: None)
  Receive Date: 20110519
  Receipt Date: 20110506
  Transmission Date: 20111010
  Serious: Yes (Other)
  Sender: FDA-Public Use
  Company Number: US-BAYER-2010-003747

PATIENT
  Age: 21 Year
  Sex: Female
  Weight: 65.76 kg

DRUGS (10)
  1. YASMIN [Suspect]
     Indication: PRODUCT USED FOR UNKNOWN INDICATION
     Dosage: UNK
     Route: 048
  2. DROSPIRENONE AND ETHINYL ESTRADIOL [Suspect]
     Indication: PRODUCT USED FOR UNKNOWN INDICATION
     Dosage: UNK
     Route: 048
  3. PROMETHAZINE [Concomitant]
     Indication: NAUSEA
     Dosage: 50 MG, PRN
     Route: 048
  4. PREVACID [Concomitant]
     Dosage: UNK
     Dates: start: 20080101
  5. SYNTHROID [Concomitant]
     Indication: THYROID DISORDER
     Dosage: 100 MCG/24HR, QD
     Route: 048
     Dates: start: 20070101
  6. VICODIN [Concomitant]
     Indication: PAIN
     Dosage: UNK
     Route: 048
  7. MILK OF MAGNESIA TAB [Concomitant]
     Indication: CONSTIPATION
     Dosage: 30 ML, UNK
     Route: 048
  8. YAZ [Suspect]
     Indication: PRODUCT USED FOR UNKNOWN INDICATION
     Dosage: UNK
     Route: 048
  9. ZITHROMAX [Concomitant]
     Dosage: UNK
     Route: 048
     Dates: start: 20081001
  10. SUDAFED 12 HOUR [Concomitant]
     Dosage: UNK
     Route: 048
     Dates: start: 20081001

REACTIONS (8)
  - GALLBLADDER DISORDER [None]
  - BILIARY DYSKINESIA [None]
  - DEEP VEIN THROMBOSIS [None]
  - INJURY [None]
  - ANXIETY [None]
  - DECREASED APPETITE [None]
  - PAIN [None]
  - BULIMIA NERVOSA [None]
